FAERS Safety Report 23713785 (Version 1)
Quarter: 2024Q2

REPORT INFORMATION
  Report Type: Spontaneous
  Country: US (occurrence: US)
  Receive Date: 20240405
  Receipt Date: 20240405
  Transmission Date: 20240716
  Serious: No
  Sender: FDA-Public Use
  Company Number: US-PERRIGO-23US012032

PATIENT
  Age: 76 Year
  Sex: Female
  Weight: 70.295 kg

DRUGS (5)
  1. DEXTROMETHORPHAN HYDROBROMIDE\GUAIFENESIN [Suspect]
     Active Substance: DEXTROMETHORPHAN HYDROBROMIDE\GUAIFENESIN
     Indication: Pulmonary congestion
     Dosage: 1 TABLET, SINGLE AT HS
     Route: 048
     Dates: start: 202310, end: 202310
  2. DEXTROMETHORPHAN HYDROBROMIDE\GUAIFENESIN [Suspect]
     Active Substance: DEXTROMETHORPHAN HYDROBROMIDE\GUAIFENESIN
     Dosage: 1 TABLET, SINGLE AT HS
     Route: 048
     Dates: start: 20231008, end: 20231008
  3. DEXTROMETHORPHAN HYDROBROMIDE\GUAIFENESIN [Suspect]
     Active Substance: DEXTROMETHORPHAN HYDROBROMIDE\GUAIFENESIN
     Dosage: 1 TABLET, SINGLE AT HS
     Route: 048
     Dates: start: 20231012, end: 20231012
  4. D-MANNOSE [Concomitant]
     Indication: Bladder disorder
     Dosage: UNK
     Route: 065
     Dates: start: 2014
  5. ALLEGRA [Concomitant]
     Active Substance: FEXOFENADINE HYDROCHLORIDE
     Indication: Perennial allergy
     Dosage: UNK
     Route: 065
     Dates: start: 2014

REACTIONS (2)
  - Diarrhoea [Unknown]
  - Expired product administered [Unknown]

NARRATIVE: CASE EVENT DATE: 20231001
